FAERS Safety Report 5577650-2 (Version None)
Quarter: 2007Q4

REPORT INFORMATION
  Report Type: 
  Country: None (occurrence: None)
  Receive Date: 20071231
  Receipt Date: 20071227
  Transmission Date: 20080405
  Serious: Yes (Hospitalization, Other)
  Sender: FDA-Public Use
  Company Number: PHNU2007DE04271

PATIENT
  Age: 25 Year
  Sex: Male

DRUGS (1)
  1. LEPONEX [Suspect]
     Dosage: UNK, UNK
     Route: 048
     Dates: start: 20071115

REACTIONS (4)
  - BRONCHITIS BACTERIAL [None]
  - GASTROINTESTINAL INFECTION [None]
  - MYOCARDITIS [None]
  - PYREXIA [None]
